FAERS Safety Report 8020602-3 (Version None)
Quarter: 2012Q1

REPORT INFORMATION
  Report Type: 
  Country: None (occurrence: None)
  Receive Date: 20120103
  Receipt Date: 20111020
  Transmission Date: 20120608
  Serious: Yes (Other)
  Sender: FDA-Public Use
  Company Number: JP-ASTRAZENECA-2011SE78979

PATIENT
  Sex: Female

DRUGS (5)
  1. SEROQUEL [Suspect]
     Route: 048
     Dates: start: 20111020
  2. SEROQUEL [Suspect]
     Route: 048
  3. SEROQUEL [Suspect]
     Indication: SCHIZOPHRENIA
     Route: 048
     Dates: end: 20111020
  4. AKINETON [Suspect]
     Route: 048
     Dates: end: 20111020
  5. AKINETON [Suspect]
     Route: 048
     Dates: start: 20111020

REACTIONS (4)
  - MULTIPLE DRUG OVERDOSE [None]
  - DYSARTHRIA [None]
  - FEELING ABNORMAL [None]
  - URINARY RETENTION [None]
